FAERS Safety Report 8506975-3 (Version None)
Quarter: 2012Q3

REPORT INFORMATION
  Report Type: 
  Country: None (occurrence: None)
  Receive Date: 20120712
  Receipt Date: 20120706
  Transmission Date: 20120928
  Serious: Yes (Other)
  Sender: FDA-Public Use
  Company Number: ES-PFIZER INC-2012163643

PATIENT
  Age: 50 Year
  Sex: Female

DRUGS (2)
  1. VARENICLINE TARTRATE [Suspect]
     Dosage: 0.5 MG, UNK
     Route: 048
  2. VARENICLINE TARTRATE [Suspect]
     Dosage: 1 MG, 2X/DAY
     Route: 048

REACTIONS (3)
  - OROPHARYNGEAL PAIN [None]
  - ABDOMINAL PAIN UPPER [None]
  - DYSPNOEA [None]
